FAERS Safety Report 4975180-X (Version None)
Quarter: 2006Q2

REPORT INFORMATION
  Report Type: 
  Country: None (occurrence: None)
  Receive Date: 20060418
  Receipt Date: 20060303
  Transmission Date: 20061013
  Serious: Yes (Other)
  Sender: FDA-Public Use
  Company Number: JP-JPN-A200600843

PATIENT
  Age: 1 Month
  Sex: Female

DRUGS (14)
  1. PAXIL [Suspect]
     Indication: DYSTHYMIC DISORDER
     Dosage: 10MG VARIABLE DOSE
     Dates: start: 20060216
  2. NORITREN [Concomitant]
     Indication: DYSTHYMIC DISORDER
     Dosage: 150MG PER DAY
     Dates: start: 20041216
  3. LEVOTOMIN [Concomitant]
     Indication: DYSTHYMIC DISORDER
     Dates: start: 20040216, end: 20051024
  4. SOLANAX [Concomitant]
     Indication: DYSTHYMIC DISORDER
     Dosage: 2.4MG PER DAY
     Dates: start: 20040109
  5. SEPAZON [Concomitant]
     Indication: DYSTHYMIC DISORDER
     Dosage: 6MG PER DAY
     Dates: start: 20051025
  6. SILECE [Concomitant]
     Indication: DYSTHYMIC DISORDER
     Dosage: 1MG PER DAY
  7. HALCION [Concomitant]
     Indication: DYSTHYMIC DISORDER
     Dosage: .25MG PER DAY
     Dates: start: 20040630
  8. VEGETAMIN [Concomitant]
     Indication: DYSTHYMIC DISORDER
     Dosage: 1U PER DAY
     Dates: start: 20050705
  9. HIBERNA [Concomitant]
     Indication: DYSTHYMIC DISORDER
  10. LORAZEPAM [Concomitant]
     Indication: DYSTHYMIC DISORDER
  11. GASTER [Concomitant]
     Indication: DYSTHYMIC DISORDER
     Dosage: 20MG PER DAY
     Dates: start: 20040109
  12. HIBERNA [Concomitant]
     Dosage: 25MG PER DAY
  13. LORAZEPAM [Concomitant]
     Dates: start: 20041216, end: 20050704
  14. GASTER [Concomitant]
     Dosage: 20MG PER DAY
     Dates: start: 20040109

REACTIONS (5)
  - ATRIAL SEPTAL DEFECT [None]
  - ATROPHY [None]
  - CAESAREAN SECTION [None]
  - DRUG EXPOSURE DURING PREGNANCY [None]
  - VENTRICULAR SEPTAL DEFECT [None]
